APPROVED DRUG PRODUCT: PAROXETINE HYDROCHLORIDE
Active Ingredient: PAROXETINE HYDROCHLORIDE
Strength: EQ 37.5MG BASE
Dosage Form/Route: TABLET, EXTENDED RELEASE;ORAL
Application: A091427 | Product #001 | TE Code: AB
Applicant: AUROBINDO PHARMA USA INC
Approved: Apr 14, 2011 | RLD: No | RS: No | Type: RX